FAERS Safety Report 14656187 (Version 1)
Quarter: 2020Q3

REPORT INFORMATION
  Report Type: Report from Study
  Country: US (occurrence: US)
  Receive Date: 20180319
  Receipt Date: 20180319
  Transmission Date: 20201104
  Serious: Yes (Hospitalization)
  Sender: FDA-Public Use
  Company Number: US-CELGENEUS-USA-20180300890

PATIENT
  Age: 78 Year
  Sex: Female
  Weight: 63.8 kg

DRUGS (11)
  1. LYRICA [Concomitant]
     Active Substance: PREGABALIN
     Indication: NEURALGIA
     Route: 065
     Dates: start: 20180226
  2. AZACITIDINE. [Suspect]
     Active Substance: AZACITIDINE
     Indication: MYELODYSPLASTIC SYNDROME
     Dosage: 75 MILLIGRAM/SQ. METER
     Route: 058
  3. ACETYLSALICYLIC ACID [Concomitant]
     Active Substance: ASPIRIN
     Indication: CORONARY ARTERY DISEASE
     Dosage: 81 MILLIGRAM
     Route: 048
     Dates: start: 2002, end: 20180222
  4. FOLIC ACID. [Concomitant]
     Active Substance: FOLIC ACID
     Indication: CORONARY ARTERY DISEASE
     Route: 048
     Dates: start: 2002, end: 20180214
  5. PYRIDOXINE [Concomitant]
     Active Substance: PYRIDOXINE
     Indication: CORONARY ARTERY DISEASE
     Route: 048
     Dates: start: 2002, end: 20180214
  6. MEDI4736 (DURVALUMAB) [Suspect]
     Active Substance: DURVALUMAB
     Indication: MYELODYSPLASTIC SYNDROME
     Dosage: 1500 MILLIGRAM
     Route: 041
     Dates: start: 20180219
  7. TREMELIMUMAB. [Suspect]
     Active Substance: TREMELIMUMAB
     Indication: MYELODYSPLASTIC SYNDROME
     Dosage: 25?75 MG
     Route: 042
     Dates: start: 20180219
  8. METOPROLOL. [Concomitant]
     Active Substance: METOPROLOL
     Indication: CORONARY ARTERY DISEASE
     Dosage: 100 MILLIGRAM
     Route: 048
     Dates: start: 2002, end: 20180222
  9. CYANOCOBALAMIN. [Concomitant]
     Active Substance: CYANOCOBALAMIN
     Indication: CORONARY ARTERY DISEASE
     Route: 048
     Dates: start: 2002, end: 20180214
  10. RIBOFLAVIN [Concomitant]
     Active Substance: RIBOFLAVIN
     Indication: CORONARY ARTERY DISEASE
     Route: 048
     Dates: start: 2002, end: 20180214
  11. ACYCLOVIR. [Concomitant]
     Active Substance: ACYCLOVIR
     Indication: NEURALGIA
     Route: 065
     Dates: start: 20180226

REACTIONS (3)
  - Pyrexia [Recovered/Resolved]
  - Myocarditis [Not Recovered/Not Resolved]
  - Pneumonitis [Not Recovered/Not Resolved]

NARRATIVE: CASE EVENT DATE: 20180222
